FAERS Safety Report 4349139-X (Version None)
Quarter: 2004Q2

REPORT INFORMATION
  Report Type: 
  Country: None (occurrence: None)
  Receive Date: 20040423
  Receipt Date: 20040414
  Transmission Date: 20050107
  Serious: Yes (Life-Threatening, Hospitalization)
  Sender: FDA-Public Use
  Company Number: 03P-087-0244866-00

PATIENT
  Age: 1 Year
  Sex: Male

DRUGS (12)
  1. CARTROL [Suspect]
     Indication: CARDIAC FAILURE
     Dosage: SEE IMAGE
     Route: 048
     Dates: start: 20030326, end: 20030901
  2. CARTROL [Suspect]
     Indication: PROPHYLAXIS
     Dosage: SEE IMAGE
     Route: 048
     Dates: start: 20030326, end: 20030901
  3. CARTROL [Suspect]
     Indication: TACHYCARDIA
     Dosage: SEE IMAGE
     Route: 048
     Dates: start: 20030326, end: 20030901
  4. CARTROL [Suspect]
     Indication: CARDIAC FAILURE
     Dosage: SEE IMAGE
     Route: 048
     Dates: start: 20030101, end: 20031226
  5. CARTROL [Suspect]
     Indication: PROPHYLAXIS
     Dosage: SEE IMAGE
     Route: 048
     Dates: start: 20030101, end: 20031226
  6. CARTROL [Suspect]
     Indication: TACHYCARDIA
     Dosage: SEE IMAGE
     Route: 048
     Dates: start: 20030101, end: 20031226
  7. ASPIRIN [Concomitant]
  8. WARARIN POTASSIUM [Concomitant]
  9. FUROSEMIDE [Concomitant]
  10. SPIRONOLACTONE [Concomitant]
  11. ISOSORBIDE DINITRATE [Concomitant]
  12. ENALAPRIL MALEATE [Concomitant]

REACTIONS (3)
  - CONVULSION [None]
  - HYPOGLYCAEMIA [None]
  - MARKEDLY REDUCED DIETARY INTAKE [None]
